FAERS Safety Report 8016442-1 (Version None)
Quarter: 2011Q4

REPORT INFORMATION
  Report Type: 
  Country: None (occurrence: None)
  Receive Date: 20111230
  Receipt Date: 20111221
  Transmission Date: 20120403
  Serious: No
  Sender: FDA-Public Use
  Company Number: DE-ABBOTT-11P-062-0862202-00

PATIENT
  Sex: Male

DRUGS (2)
  1. HUMIRA [Suspect]
     Indication: SKIN ULCER
     Route: 061
     Dates: start: 20110923, end: 20110923
  2. PHENPROCOUMON [Concomitant]
     Indication: THROMBOSIS
     Dates: start: 20091101, end: 20091101

REACTIONS (1)
  - DRUG THERAPEUTIC INCOMPATIBILITY [None]
